FAERS Safety Report 4391319-1 (Version None)
Quarter: 2004Q2

REPORT INFORMATION
  Report Type: 
  Country: None (occurrence: None)
  Receive Date: 20040621
  Receipt Date: 20040105
  Transmission Date: 20050107
  Serious: Yes (Other)
  Sender: FDA-Public Use
  Company Number: USA-2002-0001997

PATIENT
  Age: 39 Year
  Sex: Male

DRUGS (5)
  1. OXYCONTIN [Suspect]
     Indication: PAIN
     Dosage: MG
     Dates: start: 20001201, end: 20010401
  2. HYDROCODONE BITARTRATE (SIMILAR TO IND 59,175) (HYDROCODONE BITARTRATE [Suspect]
     Indication: PAIN
     Dates: start: 20001201, end: 20010401
  3. OXAZEPAM [Suspect]
  4. AMBIEN [Suspect]
  5. POTASSIUM [Concomitant]

REACTIONS (1)
  - DRUG ABUSER [None]
